FAERS Safety Report 4565922-X (Version None)
Quarter: 2005Q1

REPORT INFORMATION
  Report Type: 
  Country: None (occurrence: None)
  Receive Date: 20050128
  Receipt Date: 20050118
  Transmission Date: 20050727
  Serious: Yes (Hospitalization, Other)
  Sender: FDA-Public Use
  Company Number: 2005013692

PATIENT
  Age: 70 Year
  Sex: Male

DRUGS (10)
  1. NEURONTIN [Suspect]
     Dosage: ORAL
     Route: 048
  2. PREDNISONE [Suspect]
     Dosage: ORAL
     Route: 048
  3. HEPARIN-FRACTION CALCIUM SALT (HEPARIN-FRACTION CALCIUM SALT) [Suspect]
     Dosage: SUBCUTANEOUS
     Route: 058
     Dates: start: 20031101
  4. DICLOFENAC SODIUM [Suspect]
     Dosage: ORAL
     Route: 048
  5. PHENPROCOUMON (PHENPROCOUMON) [Suspect]
     Dosage: (3 MG) ORAL
     Route: 048
  6. PANTOPRAZOLE SODIUM [Concomitant]
  7. DIGOXIN [Concomitant]
  8. MODURETIC 5-50 [Concomitant]
  9. TRAMADOL HCL [Concomitant]
  10. CALCITONIN SALMON (CALCITONIN, SALMON) [Concomitant]

REACTIONS (6)
  - ABDOMINAL PAIN LOWER [None]
  - ANAEMIA [None]
  - FALL [None]
  - MUSCLE HAEMORRHAGE [None]
  - PLATELET FUNCTION TEST ABNORMAL [None]
  - SHOCK [None]
